FAERS Safety Report 7125870-8 (Version None)
Quarter: 2010Q4

REPORT INFORMATION
  Report Type: 
  Country: None (occurrence: None)
  Receive Date: 20101112
  Receipt Date: 20101027
  Transmission Date: 20110411
  Serious: Yes (Hospitalization, Other)
  Sender: FDA-Public Use
  Company Number: GER/UKI/10/0014009

PATIENT
  Age: 57 Year
  Sex: Female

DRUGS (9)
  1. CLOPIDOGREL [Suspect]
     Indication: ANTICOAGULANT THERAPY
     Dosage: 75 MG, 1 IN 1 D, ORAL
     Route: 048
  2. ASPIRIN [Suspect]
     Indication: ANTICOAGULANT THERAPY
     Dosage: 75 MG, 1 IN 1 D,ORAL
     Route: 048
  3. ASPIRIN [Suspect]
     Indication: ANTICOAGULANT THERAPY
  4. CHEMOTHERAPY (CHEMOTHERAPEUTICS NOS) [Suspect]
     Indication: PRODUCT USED FOR UNKNOWN INDICATION
  5. BISOPROLOL FUMARATE [Concomitant]
  6. ISOSORBIDE MONONITRATE [Concomitant]
  7. OMEPRAZOLE [Concomitant]
  8. SIMVASTATIN [Concomitant]
  9. TIBOLONE (TIBOLONE) [Concomitant]

REACTIONS (8)
  - COLON CANCER [None]
  - DYSPNOEA EXERTIONAL [None]
  - GASTROINTESTINAL HAEMORRHAGE [None]
  - HAEMOGLOBIN DECREASED [None]
  - LARGE INTESTINAL HAEMORRHAGE [None]
  - OCCULT BLOOD [None]
  - PALLOR [None]
  - SYNCOPE [None]
